FAERS Safety Report 12724194 (Version 2)
Quarter: 2016Q4

REPORT INFORMATION
  Report Type: Other
  Country: SI (occurrence: SI)
  Receive Date: 20160908
  Receipt Date: 20161004
  Transmission Date: 20170207
  Serious: Yes (Hospitalization)
  Sender: FDA-Public Use
  Company Number: SI-SYMPLMED PHARMACEUTICALS-2016SYMPLMED000314

PATIENT

DRUGS (4)
  1. CONCOR [Concomitant]
     Active Substance: BISOPROLOL FUMARATE
     Indication: HYPERTENSION
     Dosage: 2.5 MG, QD
  2. BIOPREXANIL COMBI FLIMSKO OBLOZENE TABLETE [Suspect]
     Active Substance: INDAPAMIDE\PERINDOPRIL ARGININE
     Indication: HYPERTENSION
     Dosage: 1 (5MG/1.25MG) TABLET, QD
     Route: 048
     Dates: end: 20160808
  3. ASASANTIN [Concomitant]
     Active Substance: ASPIRIN\DIPYRIDAMOLE
     Indication: CEREBROVASCULAR ACCIDENT
     Dosage: 1 (200MG/25MG) DF, QD
  4. BIOPREXANIL [Suspect]
     Active Substance: PERINDOPRIL ARGININE
     Indication: HYPERTENSION
     Dosage: 1 DF, QD
     Route: 048

REACTIONS (3)
  - Paraesthesia [Unknown]
  - Blood pressure inadequately controlled [Unknown]
  - Hyponatraemia [Recovered/Resolved]

NARRATIVE: CASE EVENT DATE: 2016
